FAERS Safety Report 11439263 (Version 1)
Quarter: 2015Q3

REPORT INFORMATION
  Report Type: Spontaneous
  Country: US (occurrence: US)
  Receive Date: 20150901
  Receipt Date: 20150901
  Transmission Date: 20151125
  Serious: Yes (Other)
  Sender: FDA-Public Use
  Company Number: US-ROCHE-1130449

PATIENT
  Age: 49 Year
  Sex: Male

DRUGS (4)
  1. RIBAVIRIN. [Suspect]
     Active Substance: RIBAVIRIN
     Route: 048
  2. TELAPREVIR [Suspect]
     Active Substance: TELAPREVIR
     Indication: CHRONIC HEPATITIS C
     Route: 065
     Dates: start: 20120612, end: 20120827
  3. PEGASYS [Suspect]
     Active Substance: PEGINTERFERON ALFA-2A
     Indication: CHRONIC HEPATITIS C
     Route: 058
     Dates: start: 20120603, end: 20120826
  4. RIBAVIRIN. [Suspect]
     Active Substance: RIBAVIRIN
     Indication: CHRONIC HEPATITIS C
     Dosage: DIVIDED DOSE DAILY
     Route: 048
     Dates: start: 20120603

REACTIONS (17)
  - Irritability [Unknown]
  - Insomnia [Unknown]
  - Stomatitis [Unknown]
  - Agitation [Unknown]
  - Pruritus [Unknown]
  - Hepatitis C [Unknown]
  - Rash generalised [Recovered/Resolved]
  - Laceration [Unknown]
  - Pruritus [Not Recovered/Not Resolved]
  - Swelling [Unknown]
  - Oedema peripheral [Unknown]
  - Abasia [Unknown]
  - Rash [Recovered/Resolved]
  - Fatigue [Unknown]
  - Rash vesicular [Unknown]
  - Weight decreased [Unknown]
  - Skin ulcer [Unknown]

NARRATIVE: CASE EVENT DATE: 201208
